FAERS Safety Report 21264186 (Version 1)
Quarter: 2022Q3

REPORT INFORMATION
  Report Type: Spontaneous
  Country: US (occurrence: US)
  Receive Date: 20220829
  Receipt Date: 20220829
  Transmission Date: 20221026
  Serious: Yes (Death, Hospitalization, Other)
  Sender: FDA-Public Use
  Company Number: US-BRISTOL-MYERS SQUIBB COMPANY-2022-091208

PATIENT
  Age: 54 Year
  Sex: Female

DRUGS (1)
  1. POMALYST [Suspect]
     Active Substance: POMALIDOMIDE
     Indication: Plasma cell myeloma
     Dosage: POMALYST 4 MG CAPSULES 21/BO
     Route: 048
     Dates: start: 20220510, end: 20220624

REACTIONS (3)
  - Death [Fatal]
  - Diplegia [Unknown]
  - Monoplegia [Unknown]

NARRATIVE: CASE EVENT DATE: 20220624
